FAERS Safety Report 16169698 (Version 1)
Quarter: 2019Q2

REPORT INFORMATION
  Report Type: Report from Study
  Country: GB (occurrence: GB)
  Receive Date: 20190408
  Receipt Date: 20190408
  Transmission Date: 20190711
  Serious: Yes (Hospitalization)
  Sender: FDA-Public Use
  Company Number: GB-JNJFOC-20190404812

PATIENT
  Age: 51 Year
  Sex: Male

DRUGS (1)
  1. STELARA [Suspect]
     Active Substance: USTEKINUMAB
     Indication: PSORIASIS
     Dosage: DOSE: 45 MG/0.5 ML
     Route: 058
     Dates: start: 2013

REACTIONS (2)
  - Testis cancer [Unknown]
  - Psoriasis [Unknown]

NARRATIVE: CASE EVENT DATE: 201810
